FAERS Safety Report 15409175 (Version 2)
Quarter: 2018Q3

REPORT INFORMATION
  Report Type: Spontaneous
  Country: US (occurrence: US)
  Receive Date: 20180920
  Receipt Date: 20180925
  Transmission Date: 20181010
  Serious: No
  Sender: FDA-Public Use
  Company Number: US-ELI_LILLY_AND_COMPANY-US201809003054

PATIENT
  Age: 63 Year
  Sex: Male

DRUGS (6)
  1. SYNTHROID [Concomitant]
     Active Substance: LEVOTHYROXINE SODIUM
     Indication: GROWTH HORMONE DEFICIENCY
  2. TESTOSTERONE. [Concomitant]
     Active Substance: TESTOSTERONE
     Indication: GROWTH HORMONE DEFICIENCY
     Dosage: 1 DF, WEEKLY (1/W)
  3. HUMATROPE [Suspect]
     Active Substance: SOMATROPIN
     Dosage: 0.90 UNK, UNK
     Route: 058
     Dates: start: 20180907
  4. HUMATROPE [Suspect]
     Active Substance: SOMATROPIN
     Dosage: 0.90 UNK, UNK
     Route: 058
     Dates: end: 20180924
  5. HUMATROPE [Suspect]
     Active Substance: SOMATROPIN
     Indication: GROWTH HORMONE DEFICIENCY
     Dosage: 1.10 MG, UNKNOWN
     Route: 058
     Dates: start: 20180811
  6. HYDROCORTISONE. [Concomitant]
     Active Substance: HYDROCORTISONE
     Indication: GROWTH HORMONE DEFICIENCY

REACTIONS (5)
  - Weight increased [Not Recovered/Not Resolved]
  - Paraesthesia [Not Recovered/Not Resolved]
  - Joint swelling [Not Recovered/Not Resolved]
  - Hypoaesthesia [Not Recovered/Not Resolved]
  - Peripheral swelling [Recovered/Resolved]

NARRATIVE: CASE EVENT DATE: 201808
